FAERS Safety Report 14553019 (Version 3)
Quarter: 2018Q3

REPORT INFORMATION
  Report Type: Spontaneous
  Country: US (occurrence: US)
  Receive Date: 20180220
  Receipt Date: 20180827
  Transmission Date: 20181010
  Serious: No
  Sender: FDA-Public Use
  Company Number: US-LEXICON PHARMACEUTICALS, INC-18-1606-00079

PATIENT
  Sex: Male

DRUGS (19)
  1. TELOTRISTAT ETHYL [Suspect]
     Active Substance: TELOTRISTAT ETHYL
     Indication: CARCINOID TUMOUR
     Route: 048
     Dates: start: 20170422
  2. MELATONIN [Concomitant]
     Active Substance: MELATONIN
  3. MULTIVITAMIN [Concomitant]
     Active Substance: VITAMINS
  4. OMEGA3 [Concomitant]
  5. AFINITOR [Suspect]
     Active Substance: EVEROLIMUS
     Dates: start: 20171022
  6. LOPERAMIDE [Concomitant]
     Active Substance: LOPERAMIDE
  7. ROXICODONE [Concomitant]
     Active Substance: OXYCODONE HYDROCHLORIDE
  8. METAMUCIL [Concomitant]
     Active Substance: PLANTAGO SEED
  9. FIBER [Concomitant]
     Active Substance: PSYLLIUM HUSK
  10. DIPHENOXYLATE?ATROPINE [Concomitant]
     Active Substance: ATROPINE\DIPHENOXYLATE
  11. SIMETHICONE (DIMETHICONE) [Concomitant]
     Active Substance: DIMETHICONE
  12. BELLADONNA?OPIUM [Concomitant]
  13. QUESTRAN [Concomitant]
     Active Substance: CHOLESTYRAMINE
  14. MEGACE ORAL SUS [Concomitant]
  15. CREON [Concomitant]
     Active Substance: PANCRELIPASE AMYLASE\PANCRELIPASE LIPASE\PANCRELIPASE PROTEASE
  16. K?PHOS [Concomitant]
     Active Substance: POTASSIUM PHOSPHATE, MONOBASIC
  17. TYLENOL [Concomitant]
     Active Substance: ACETAMINOPHEN
  18. ZOFRAN [Concomitant]
     Active Substance: ONDANSETRON HYDROCHLORIDE
  19. SANDOSTATIN [Concomitant]
     Active Substance: OCTREOTIDE ACETATE
     Dates: start: 20170203

REACTIONS (5)
  - Nasopharyngitis [Not Recovered/Not Resolved]
  - Pigmentation disorder [Recovered/Resolved]
  - Scab [Recovered/Resolved]
  - Arthralgia [Not Recovered/Not Resolved]
  - Joint swelling [Not Recovered/Not Resolved]
